FAERS Safety Report 16627077 (Version 1)
Quarter: 2019Q3

REPORT INFORMATION
  Report Type: Spontaneous
  Country: US (occurrence: US)
  Receive Date: 20190724
  Receipt Date: 20190724
  Transmission Date: 20191004
  Serious: No
  Sender: FDA-Public Use
  Company Number: US-SA-2019SA199351

PATIENT
  Sex: Male

DRUGS (11)
  1. AUBAGIO [Suspect]
     Active Substance: TERIFLUNOMIDE
     Dosage: 1 DF, QD
     Route: 048
     Dates: start: 20150211
  2. TYSABRI [Concomitant]
     Active Substance: NATALIZUMAB
  3. BACLOFEN. [Concomitant]
     Active Substance: BACLOFEN
  4. CEFTRIAXONE. [Concomitant]
     Active Substance: CEFTRIAXONE
  5. LEVOFLOXACIN. [Concomitant]
     Active Substance: LEVOFLOXACIN
  6. METRONIDAZOLE [METRONIDAZOLE SODIUM] [Concomitant]
  7. CITALOPRAM [Concomitant]
     Active Substance: CITALOPRAM HYDROBROMIDE
  8. MECLIZINE HCL [Concomitant]
     Active Substance: MECLIZINE HYDROCHLORIDE
  9. ONDANSETRON HCL [Concomitant]
     Active Substance: ONDANSETRON HYDROCHLORIDE
  10. DEX [DEXTROMETHORPHAN HYDROBROMIDE] [Concomitant]
  11. SERTRALINE HCL [Concomitant]
     Active Substance: SERTRALINE HYDROCHLORIDE
     Dosage: UNK

REACTIONS (1)
  - Product dose omission [Unknown]
